FAERS Safety Report 19617975 (Version 2)
Quarter: 2021Q3

REPORT INFORMATION
  Report Type: Report from Study
  Country: AR (occurrence: AR)
  Receive Date: 20210727
  Receipt Date: 20210730
  Transmission Date: 20211014
  Serious: Yes (Death, Other)
  Sender: FDA-Public Use
  Company Number: AR-BRISTOL-MYERS SQUIBB COMPANY-BMS-2021-071682

PATIENT
  Age: 78 Year
  Sex: Male
  Weight: 70 kg

DRUGS (1)
  1. IPILIMUMAB [Suspect]
     Active Substance: IPILIMUMAB
     Indication: MALIGNANT MELANOMA
     Dosage: 210 MILLIGRAM, QMO (50 MG/10ML)
     Route: 042
     Dates: start: 20210616, end: 202107

REACTIONS (6)
  - Blood test abnormal [Fatal]
  - Blood potassium decreased [Unknown]
  - Haematocrit decreased [Unknown]
  - Off label use [Unknown]
  - Malignant neoplasm progression [Unknown]
  - Cardio-respiratory arrest [Fatal]

NARRATIVE: CASE EVENT DATE: 20210628
